FAERS Safety Report 8206315-3 (Version None)
Quarter: 2012Q1

REPORT INFORMATION
  Report Type: 
  Country: None (occurrence: None)
  Receive Date: 20120313
  Receipt Date: 20120228
  Transmission Date: 20120608
  Serious: Yes (Life-Threatening, Hospitalization)
  Sender: FDA-Public Use
  Company Number: PHEH2012US005288

PATIENT
  Sex: Male
  Weight: 79.365 kg

DRUGS (9)
  1. LASIX [Concomitant]
  2. COUMADIN [Concomitant]
  3. ALLOPURINOL [Concomitant]
  4. NAPROXEN (ALEVE) [Concomitant]
  5. METOPROLOL SUCCINATE [Concomitant]
  6. OXYCODONE HCL [Concomitant]
  7. EXJADE [Suspect]
     Indication: IRON OVERLOAD
     Dosage: 750 MG, QD
     Route: 048
     Dates: start: 20091101, end: 20120213
  8. METHADON HCL TAB [Concomitant]
  9. TRANSFUSIONS [Concomitant]

REACTIONS (10)
  - TRANSAMINASES INCREASED [None]
  - MENTAL STATUS CHANGES [None]
  - ASCITES [None]
  - BLOOD CREATININE INCREASED [None]
  - ABDOMINAL PAIN [None]
  - VOMITING [None]
  - HYPERBILIRUBINAEMIA [None]
  - DIARRHOEA [None]
  - ANAEMIA [None]
  - RENAL IMPAIRMENT [None]
